FAERS Safety Report 6290846-X (Version None)
Quarter: 2009Q3

REPORT INFORMATION
  Report Type: 
  Country: None (occurrence: None)
  Receive Date: 20090730
  Receipt Date: 20090717
  Transmission Date: 20100115
  Serious: Yes (Death, Hospitalization)
  Sender: FDA-Public Use
  Company Number: PL-AMGEN-UK329601

PATIENT
  Sex: Male
  Weight: 80 kg

DRUGS (16)
  1. PANITUMUMAB [Suspect]
     Indication: SQUAMOUS CELL CARCINOMA
     Route: 042
     Dates: start: 20081211, end: 20081211
  2. CISPLATIN [Concomitant]
     Route: 065
     Dates: start: 20081211, end: 20081211
  3. FLUOROURACIL [Concomitant]
     Route: 065
     Dates: start: 20081211, end: 20081215
  4. SODIUM CHLORIDE [Concomitant]
     Route: 042
     Dates: start: 20081211
  5. MANNITOL [Concomitant]
     Route: 042
     Dates: start: 20081211
  6. POTASSIUM CHLORIDE [Concomitant]
     Route: 042
     Dates: start: 20081211
  7. MAGNESIUM SULFATE [Concomitant]
     Route: 042
     Dates: start: 20081211
  8. DEXTROSE 5% [Concomitant]
     Route: 042
     Dates: start: 20081211, end: 20081215
  9. DEXAMETHASONE [Concomitant]
     Route: 042
     Dates: start: 20081211, end: 20081215
  10. ZOFRAN [Concomitant]
     Route: 042
     Dates: start: 20081211, end: 20081215
  11. KETONAL [Concomitant]
     Route: 048
     Dates: start: 20081209
  12. OMEPRAZOLE [Concomitant]
     Route: 048
     Dates: start: 20081209
  13. VITAMIN B6 [Concomitant]
     Route: 048
     Dates: start: 20081216
  14. ACIDUM FOLICUM [Concomitant]
     Route: 048
     Dates: start: 20081216
  15. FERROUS SULFATE/VITAMINS NOS [Concomitant]
     Route: 048
     Dates: start: 20081216
  16. DEXAMETASON [Concomitant]
     Route: 048
     Dates: start: 20081216

REACTIONS (1)
  - CEREBROVASCULAR ACCIDENT [None]
